FAERS Safety Report 8591502-5 (Version None)
Quarter: 2012Q3

REPORT INFORMATION
  Report Type: 
  Country: None (occurrence: None)
  Receive Date: 20120814
  Receipt Date: 20120801
  Transmission Date: 20120928
  Serious: Yes (Other)
  Sender: FDA-Public Use
  Company Number: DE-RANBAXY-2012RR-58786

PATIENT
  Age: 74 Year
  Sex: Female

DRUGS (8)
  1. VENLAFAXINE [Suspect]
     Indication: DEPRESSION
     Route: 065
  2. IPRATROPIUM BROMIDE [Suspect]
     Indication: CHRONIC OBSTRUCTIVE PULMONARY DISEASE
  3. REBOXETINE [Concomitant]
     Indication: DEPRESSION
     Route: 065
  4. CEFUROXIME [Suspect]
     Indication: INFECTION
     Route: 065
  5. ALBUTEROL SULATE [Suspect]
     Indication: INFECTION
     Route: 065
  6. ALBUTEROL SULATE [Suspect]
     Indication: CHRONIC OBSTRUCTIVE PULMONARY DISEASE
  7. CEFUROXIME [Suspect]
     Indication: CHRONIC OBSTRUCTIVE PULMONARY DISEASE
  8. IPRATROPIUM BROMIDE [Suspect]
     Indication: INFECTION
     Route: 065

REACTIONS (1)
  - INAPPROPRIATE ANTIDIURETIC HORMONE SECRETION [None]
